FAERS Safety Report 12196263 (Version 2)
Quarter: 2016Q2

REPORT INFORMATION
  Report Type: Spontaneous
  Country: AU (occurrence: AU)
  Receive Date: 20160321
  Receipt Date: 20160511
  Transmission Date: 20160815
  Serious: Yes (Other)
  Sender: FDA-Public Use
  Company Number: AU-TAKEDA-2016TUS004562

PATIENT
  Age: 25 Year
  Sex: Male
  Weight: 74.7 kg

DRUGS (2)
  1. IMURAN [Concomitant]
     Active Substance: AZATHIOPRINE
     Dosage: 100 MG, UNK
     Dates: start: 20130923
  2. ENTYVIO [Suspect]
     Active Substance: VEDOLIZUMAB
     Indication: CROHN^S DISEASE
     Dosage: UNK
     Route: 065
     Dates: start: 20151207

REACTIONS (1)
  - Long thoracic nerve palsy [Recovering/Resolving]

NARRATIVE: CASE EVENT DATE: 201602
